FAERS Safety Report 6872753-4 (Version None)
Quarter: 2010Q3

REPORT INFORMATION
  Report Type: 
  Country: None (occurrence: None)
  Receive Date: 20100723
  Receipt Date: 20081223
  Transmission Date: 20110219
  Serious: Yes (Other)
  Sender: FDA-Public Use
  Company Number: US-PFIZER INC-2008089792

PATIENT
  Sex: Female
  Weight: 86.2 kg

DRUGS (3)
  1. CHANTIX [Suspect]
     Route: 048
     Dates: start: 20060101, end: 20080101
  2. ATENOLOL [Concomitant]
  3. CLONAZEPAM [Concomitant]

REACTIONS (8)
  - AGGRESSION [None]
  - ANGER [None]
  - BLOOD CHOLESTEROL INCREASED [None]
  - CHEST DISCOMFORT [None]
  - HEADACHE [None]
  - NIGHTMARE [None]
  - WEIGHT INCREASED [None]
  - WRONG TECHNIQUE IN DRUG USAGE PROCESS [None]
